FAERS Safety Report 9663150 (Version 2)
Quarter: 2013Q4

REPORT INFORMATION
  Report Type: Spontaneous
  Country: JP (occurrence: JP)
  Receive Date: 20131101
  Receipt Date: 20131112
  Transmission Date: 20140711
  Serious: Yes (Other)
  Sender: FDA-Public Use
  Company Number: JP-AMGEN-JPNSP2013077043

PATIENT
  Age: 69 Year
  Sex: Male

DRUGS (4)
  1. ARANESP [Suspect]
     Indication: NEPHROGENIC ANAEMIA
     Dosage: 80 MUG, UNK
     Route: 042
  2. EPOGIN S [Suspect]
     Indication: NEPHROGENIC ANAEMIA
     Dosage: 3000 IU, Q3WK
     Route: 042
     Dates: start: 20130731, end: 20131008
  3. ALEVIATIN /00017401/ [Suspect]
     Indication: PRODUCT USED FOR UNKNOWN INDICATION
     Dosage: UNK
     Route: 065
     Dates: end: 20131009
  4. DEPAKENE                           /00228501/ [Concomitant]
     Dosage: UNK
     Route: 048
     Dates: start: 20131010

REACTIONS (2)
  - Aplasia pure red cell [Unknown]
  - Anti-erythropoietin antibody [Unknown]
